FAERS Safety Report 7344993-1 (Version None)
Quarter: 2011Q1

REPORT INFORMATION
  Report Type: 
  Country: None (occurrence: None)
  Receive Date: 20110302
  Receipt Date: 20110215
  Transmission Date: 20110831
  Serious: Yes (Hospitalization, Disabling, Congenital Anomaly)
  Sender: FDA-Public Use
  Company Number: AUR-APL-2011-00554

PATIENT

DRUGS (4)
  1. CLENIL MODULITE INHALATION (PRN) [Concomitant]
  2. VENTOLIN INHALATION (PRN) [Concomitant]
  3. FLUOXETINE [Suspect]
     Indication: DEPRESSION
     Dosage: 20MG-QD-TRANSPLACENTAL
     Route: 064
     Dates: start: 20100413, end: 20100617
  4. FEXOFENADINE [Concomitant]

REACTIONS (2)
  - MULTIPLE CONGENITAL ABNORMALITIES [None]
  - MATERNAL DRUGS AFFECTING FOETUS [None]
